FAERS Safety Report 8942654 (Version 2)
Quarter: 2013Q1

REPORT INFORMATION
  Report Type: Spontaneous
  Country: JP (occurrence: JP)
  Receive Date: 20121204
  Receipt Date: 20130215
  Transmission Date: 20140127
  Serious: Yes (Hospitalization)
  Sender: FDA-Public Use
  Company Number: JP-SANOFI-AVENTIS-2012SA088066

PATIENT
  Age: 62 Year
  Sex: Male
  Weight: 80 kg

DRUGS (7)
  1. LANTUS SOLOSTAR [Suspect]
     Indication: TYPE 2 DIABETES MELLITUS
     Dosage: DOSE:260 UNIT(S)
     Route: 058
  2. LANTUS SOLOSTAR [Suspect]
     Indication: TYPE 2 DIABETES MELLITUS
     Dosage: DOSE:4 UNIT(S)
     Route: 065
  3. SOLOSTAR [Suspect]
     Indication: DEVICE THERAPY
  4. GLIMEPIRIDE [Concomitant]
     Indication: TYPE 2 DIABETES MELLITUS
     Route: 048
  5. ANTIHYPERTENSIVES [Concomitant]
     Indication: HYPERTENSION
  6. PIOGLITAZONE [Concomitant]
     Indication: TYPE 2 DIABETES MELLITUS
     Route: 048
  7. METFORMIN [Concomitant]
     Indication: TYPE 2 DIABETES MELLITUS
     Route: 048

REACTIONS (13)
  - Hyponatraemia [Recovered/Resolved]
  - Accidental overdose [Unknown]
  - Osmotic demyelination syndrome [Recovered/Resolved]
  - Dysphagia [Recovered/Resolved]
  - Dyslalia [Recovered/Resolved]
  - Monoparesis [Recovered/Resolved]
  - Lethargy [Recovered/Resolved]
  - Respiratory acidosis [Recovered/Resolved]
  - Blood pH decreased [Recovered/Resolved]
  - PCO2 increased [Recovered/Resolved]
  - Respiratory rate increased [Recovered/Resolved]
  - Hypoglycaemia [Recovered/Resolved]
  - Hypoglycaemic coma [Recovered/Resolved]
